FAERS Safety Report 24908663 (Version 2)
Quarter: 2025Q1

REPORT INFORMATION
  Report Type: Spontaneous
  Country: CA (occurrence: CA)
  Receive Date: 20250131
  Receipt Date: 20250225
  Transmission Date: 20250409
  Serious: Yes (Death, Other)
  Sender: Unknown Manufacturer
  Company Number: CA-862174955-ML2025-00432

PATIENT
  Sex: Female

DRUGS (1)
  1. RANOLAZINE [Suspect]
     Active Substance: RANOLAZINE
     Indication: Angina pectoris
     Dosage: MAINTENANCE - 500 MG BID TWICE DAILY
     Route: 048
     Dates: start: 20240610

REACTIONS (1)
  - Death [Fatal]
